FAERS Safety Report 6029139-4 (Version None)
Quarter: 2009Q1

REPORT INFORMATION
  Report Type: 
  Country: None (occurrence: None)
  Receive Date: 20090102
  Receipt Date: 20081212
  Transmission Date: 20090719
  Serious: Yes (Death)
  Sender: FDA-Public Use
  Company Number: 08-235

PATIENT
  Age: 81 Year
  Sex: Female

DRUGS (10)
  1. FAZACLO ODT [Suspect]
     Indication: BIPOLAR DISORDER
     Dosage: 12.5 MG QAM PO  ;  50MG QHS
     Route: 048
     Dates: start: 20080111, end: 20081111
  2. TYLENOL (CAPLET) [Concomitant]
  3. ASPIRIN [Concomitant]
  4. COREG [Concomitant]
  5. FUROSEMIDE [Concomitant]
  6. LEXAPRO [Concomitant]
  7. LITHIUM [Concomitant]
  8. MEGACE [Concomitant]
  9. THERAPEUTIC MULTIVITAMIN [Concomitant]
  10. PERPHENAZINE [Concomitant]

REACTIONS (1)
  - DEATH [None]
